FAERS Safety Report 9000956 (Version 2)
Quarter: 2014Q4

REPORT INFORMATION
  Report Type: Spontaneous
  Country: PK (occurrence: PK)
  Receive Date: 20130107
  Receipt Date: 20141207
  Transmission Date: 20150529
  Serious: Yes (Death, Hospitalization)
  Sender: FDA-Public Use
  Company Number: PHHY2013PK001366

PATIENT
  Age: 84 Year
  Sex: Male

DRUGS (2)
  1. ACLASTA [Suspect]
     Active Substance: ZOLEDRONIC ACID
     Indication: OSTEOPOROSIS
     Route: 042
     Dates: start: 20120118
  2. CALCIUM [Concomitant]
     Active Substance: CALCIUM
     Indication: OSTEOPOROSIS
     Dosage: QD
     Route: 048
     Dates: start: 201201

REACTIONS (4)
  - Loss of consciousness [Unknown]
  - Lethargy [Unknown]
  - Cardiopulmonary failure [Fatal]
  - Dizziness [Unknown]

NARRATIVE: CASE EVENT DATE: 20120410
